FAERS Safety Report 15894250 (Version 1)
Quarter: 2019Q1

REPORT INFORMATION
  Report Type: Spontaneous
  Country: NO (occurrence: NO)
  Receive Date: 20190131
  Receipt Date: 20190131
  Transmission Date: 20190417
  Serious: Yes (Hospitalization)
  Sender: FDA-Public Use
  Company Number: NO-ABBVIE-18K-122-2577149-00

PATIENT
  Age: 72 Year
  Sex: Female

DRUGS (3)
  1. VENCLYXTO [Suspect]
     Active Substance: VENETOCLAX
     Indication: PRODUCT USED FOR UNKNOWN INDICATION
     Route: 048
     Dates: start: 20181018, end: 20181127
  2. VENCLYXTO [Suspect]
     Active Substance: VENETOCLAX
     Route: 065
     Dates: start: 20181127, end: 20181128
  3. VENCLYXTO [Suspect]
     Active Substance: VENETOCLAX
     Dosage: LOW DOSES
     Route: 065

REACTIONS (4)
  - Anaemia [Unknown]
  - Condition aggravated [Not Recovered/Not Resolved]
  - Gastrointestinal infection [Recovering/Resolving]
  - Thrombocytopenia [Unknown]
